FAERS Safety Report 4834044-2 (Version None)
Quarter: 2005Q4

REPORT INFORMATION
  Report Type: 
  Country: None (occurrence: None)
  Receive Date: 20051122
  Receipt Date: 20051110
  Transmission Date: 20060501
  Serious: Yes (Other)
  Sender: FDA-Public Use
  Company Number: US-NOVOPROD-248480

PATIENT
  Sex: Female

DRUGS (1)
  1. VAGIFEM [Suspect]
     Indication: HYSTERECTOMY
     Dosage: 1 TAB, QD
     Route: 067
     Dates: start: 20050908

REACTIONS (1)
  - ATRIAL FIBRILLATION [None]
